FAERS Safety Report 7765515-7 (Version None)
Quarter: 2011Q3

REPORT INFORMATION
  Report Type: 
  Country: None (occurrence: None)
  Receive Date: 20110921
  Receipt Date: 20110913
  Transmission Date: 20111222
  Serious: Yes (Other)
  Sender: FDA-Public Use
  Company Number: US-ASTRAZENECA-2011SE23588

PATIENT
  Age: 59 Year
  Sex: Male
  Weight: 105.2 kg

DRUGS (11)
  1. THEOPHYLLINE [Concomitant]
  2. ADVAIR DISKUS 100/50 [Concomitant]
  3. NEXIUM [Suspect]
     Indication: GASTROOESOPHAGEAL REFLUX DISEASE
     Dosage: DAILY
     Route: 048
     Dates: start: 20100430
  4. FISH OIL [Concomitant]
  5. TERBUTALINE [Concomitant]
  6. METOCLOPRAMIDE [Concomitant]
  7. SPIRIVA [Concomitant]
  8. TRAMADOL HCL [Concomitant]
  9. ASPIRIN [Concomitant]
  10. SINGULAIR [Concomitant]
  11. AVODART [Concomitant]

REACTIONS (14)
  - EJECTION FRACTION DECREASED [None]
  - CONSTIPATION [None]
  - DRUG DOSE OMISSION [None]
  - ABSCESS NECK [None]
  - REGURGITATION [None]
  - ARTERIAL OCCLUSIVE DISEASE [None]
  - DYSPNOEA [None]
  - CHEST PAIN [None]
  - COUGH [None]
  - BACK PAIN [None]
  - NAUSEA [None]
  - ELECTROCARDIOGRAM ABNORMAL [None]
  - VOMITING [None]
  - ADVERSE EVENT [None]
